FAERS Safety Report 8898820 (Version 2)
Quarter: 2013Q2

REPORT INFORMATION
  Report Type: Spontaneous
  Country: BR (occurrence: BR)
  Receive Date: 20121109
  Receipt Date: 20130611
  Transmission Date: 20140414
  Serious: Yes (Other)
  Sender: FDA-Public Use
  Company Number: BR-BRISTOL-MYERS SQUIBB COMPANY-17088121

PATIENT
  Age: 73 Year
  Sex: Female
  Weight: 45 kg

DRUGS (8)
  1. HYDREA CAPS 500 MG [Suspect]
     Indication: ESSENTIAL THROMBOCYTHAEMIA
     Dosage: INITIAL DOSE: 500 MG/DAY ON  PAIR DAYS AND 1000MG ON ODD DAYS
     Route: 048
  2. LOSARTAN [Concomitant]
  3. ATENOLOL [Concomitant]
  4. METFORMIN [Concomitant]
  5. FERROUS SULFATE [Concomitant]
  6. NATRILIX [Concomitant]
  7. DIAMICRON [Concomitant]
  8. ACETYLSALICYLIC ACID [Concomitant]

REACTIONS (4)
  - Cerebrovascular accident [Unknown]
  - Blood pressure fluctuation [Unknown]
  - Skin discolouration [Unknown]
  - Alopecia [Not Recovered/Not Resolved]
